FAERS Safety Report 20144848 (Version 1)
Quarter: 2021Q4

REPORT INFORMATION
  Report Type: Report from Study
  Country: US (occurrence: US)
  Receive Date: 20211203
  Receipt Date: 20211203
  Transmission Date: 20220303
  Serious: Yes (Other)
  Sender: FDA-Public Use
  Company Number: US-BAYER-2021A260200

PATIENT

DRUGS (1)
  1. ALKA-SELTZER PLUS SEVERE COLD POWERFAST FIZZ DAY AND NIGHT [Suspect]
     Active Substance: ASPIRIN\DEXTROMETHORPHAN HYDROBROMIDE\DOXYLAMINE SUCCINATE\PHENYLEPHRINE BITARTRATE
     Indication: Sleep disorder therapy

REACTIONS (2)
  - Choking [Unknown]
  - Drug effective for unapproved indication [Unknown]
